FAERS Safety Report 23667946 (Version 4)
Quarter: 2024Q3

REPORT INFORMATION
  Report Type: Report from Study
  Country: CA (occurrence: CA)
  Receive Date: 20240325
  Receipt Date: 20240920
  Transmission Date: 20241017
  Serious: Yes (Other)
  Sender: ELI LILLY AND CO
  Company Number: CA-ELI_LILLY_AND_COMPANY-CA202403009068

PATIENT
  Age: 44 Year
  Sex: Female

DRUGS (3)
  1. OMVOH [Suspect]
     Active Substance: MIRIKIZUMAB-MRKZ
     Indication: Colitis ulcerative
     Dosage: 300 MG, UNKNOWN
     Route: 042
     Dates: start: 20240313
  2. OMVOH [Suspect]
     Active Substance: MIRIKIZUMAB-MRKZ
     Dosage: 200 MG, UNKNOWN
     Route: 058
     Dates: start: 20240801
  3. OMVOH [Suspect]
     Active Substance: MIRIKIZUMAB-MRKZ
     Dosage: UNK UNK, UNKNOWN
     Route: 058
     Dates: start: 20240830

REACTIONS (9)
  - Eczema [Unknown]
  - Paraesthesia [Unknown]
  - Erythema [Recovering/Resolving]
  - Hypersensitivity [Unknown]
  - Anxiety [Unknown]
  - Injection site vesicles [Unknown]
  - Injection site discomfort [Unknown]
  - Injection site hypersensitivity [Unknown]
  - Injection site rash [Unknown]

NARRATIVE: CASE EVENT DATE: 20240801
